FAERS Safety Report 6567636-3 (Version None)
Quarter: 2010Q1

REPORT INFORMATION
  Report Type: 
  Country: None (occurrence: None)
  Receive Date: 20100202
  Receipt Date: 20100201
  Transmission Date: 20100710
  Serious: Yes (Hospitalization)
  Sender: FDA-Public Use
  Company Number: US-BRISTOL-MYERS SQUIBB COMPANY-14780480

PATIENT
  Age: 60 Year
  Sex: Male
  Weight: 66 kg

DRUGS (19)
  1. IXABEPILONE [Suspect]
     Indication: NON-SMALL CELL LUNG CANCER
     Dosage: OVER 3 HRS DOSE 45MG
     Route: 042
     Dates: start: 20090901, end: 20091013
  2. CARBOPLATIN [Suspect]
     Indication: NON-SMALL CELL LUNG CANCER
     Dosage: 1 DF = AUC 5; OVER 30-60MINS; DOSE 446 MG
     Route: 042
     Dates: start: 20090901, end: 20091013
  3. AVASTIN [Suspect]
     Indication: NON-SMALL CELL LUNG CANCER
     Dosage: OVER 90MINS; DOSE 1000 MG
     Route: 042
     Dates: start: 20090901, end: 20091013
  4. PROTONIX [Concomitant]
     Dosage: 40MG/D,RESTRTED ON 27AUG09
     Route: 048
     Dates: start: 20030101
  5. PRAVASTATIN [Concomitant]
     Dosage: STARTED AGAIN ON 27AUG09
     Dates: start: 20030101
  6. ASPIRIN [Concomitant]
     Dosage: RESTRTED ON 27AUG09
     Dates: start: 20030101
  7. NITROGLYCERIN [Concomitant]
     Indication: CHEST PAIN
     Dates: start: 20090827
  8. METOPROLOL SUCCINATE [Concomitant]
     Dosage: 1/2TABS;2003:25MG,BID,27AUG09-11SEP09
     Dates: start: 20030101
  9. FLORINEF [Concomitant]
     Dosage: INTERRUPTED ON 30OCT09
     Dates: start: 20090908, end: 20091108
  10. ATIVAN [Concomitant]
     Dosage: Q6HRS
     Dates: start: 20090901, end: 20091030
  11. LISINOPRIL [Concomitant]
     Dates: start: 20030101
  12. HYCODAN [Concomitant]
     Dosage: 4-6HRS
  13. PHENERGAN HCL [Concomitant]
     Dosage: 6-8HRS
     Dates: start: 20090901
  14. ZOFRAN [Concomitant]
     Dosage: Q8 HOURS
     Dates: start: 20090901
  15. POTASSIUM CHLORIDE [Concomitant]
     Dates: start: 20091105
  16. VITAMIN B-12 [Concomitant]
     Dates: start: 20091105
  17. MIDODRINE HCL [Concomitant]
     Dosage: 1DOSAGEFORM=5MG-2TABS
     Dates: start: 20091106
  18. ZYRTEC [Concomitant]
     Dates: start: 20091105
  19. ONDANSETRON [Concomitant]
     Dosage: 1DOSAGEFORM=4MG-2TABS,8HRS
     Dates: start: 20091105

REACTIONS (3)
  - DEHYDRATION [None]
  - HYPOTENSION [None]
  - HYPOVOLAEMIA [None]
